FAERS Safety Report 6033961-8 (Version None)
Quarter: 2009Q1

REPORT INFORMATION
  Report Type: 
  Country: None (occurrence: None)
  Receive Date: 20090112
  Receipt Date: 20090107
  Transmission Date: 20090719
  Serious: Yes (Death)
  Sender: FDA-Public Use
  Company Number: PHHY2008CA32784

PATIENT

DRUGS (4)
  1. DIOVAN [Suspect]
     Indication: HYPERTENSION
     Dosage: 160 MG
     Route: 048
     Dates: start: 20070925
  2. PLENDIL [Concomitant]
     Dosage: 10 MG
  3. VITAMIN B-12 [Concomitant]
  4. ASPIRIN [Concomitant]
     Dosage: 81 MG

REACTIONS (1)
  - DEATH [None]
